FAERS Safety Report 6056267-X (Version None)
Quarter: 2009Q1

REPORT INFORMATION
  Report Type: 
  Country: None (occurrence: None)
  Receive Date: 20090126
  Receipt Date: 20090126
  Transmission Date: 20090719
  Serious: Yes (Other)
  Sender: FDA-Public Use
  Company Number: None

PATIENT
  Sex: Female
  Weight: 47.6277 kg

DRUGS (1)
  1. BONIVA [Suspect]
     Indication: OSTEOPOROSIS
     Dosage: 150 MONTHLY SUMMER OF 07
     Dates: start: 20070101, end: 20081101

REACTIONS (3)
  - GLOSSODYNIA [None]
  - LIP SWELLING [None]
  - URTICARIA [None]
